FAERS Safety Report 9876332 (Version 2)
Quarter: 2014Q1

REPORT INFORMATION
  Report Type: Other
  Country: US (occurrence: US)
  Receive Date: 20140206
  Receipt Date: 20140206
  Transmission Date: 20141002
  Serious: No
  Sender: FDA-Public Use
  Company Number: US-ACORDA-ACO_37580_2013

PATIENT
  Sex: Female

DRUGS (5)
  1. AMPYRA [Suspect]
     Indication: MULTIPLE SCLEROSIS
     Dosage: UNK, BID
     Route: 048
     Dates: start: 20130123, end: 2013
  2. AMPYRA [Suspect]
     Dosage: 10 MG, QOD
     Route: 048
     Dates: start: 2013, end: 20130711
  3. AMPYRA [Suspect]
     Dosage: 10 MG, BID
     Route: 048
     Dates: start: 20130712
  4. TIZANIDINE [Concomitant]
     Indication: PRODUCT USED FOR UNKNOWN INDICATION
     Dosage: 2 MG, BID
     Route: 048
  5. NALTREXONE [Concomitant]
     Indication: PRODUCT USED FOR UNKNOWN INDICATION
     Dosage: 3 MG, QD
     Route: 048

REACTIONS (1)
  - Inappropriate schedule of drug administration [Recovered/Resolved]
